FAERS Safety Report 9357255 (Version 1)
Quarter: 2013Q2

REPORT INFORMATION
  Report Type: Spontaneous
  Country: US (occurrence: None)
  Receive Date: 20130617
  Receipt Date: 20130617
  Transmission Date: 20140414
  Serious: No
  Sender: FDA-Public Use
  Company Number: TPA2013A02752

PATIENT
  Age: 64 Year
  Sex: Female

DRUGS (3)
  1. PREVACID [Suspect]
     Indication: HELICOBACTER INFECTION
     Dosage: 2 IN 1 D
     Route: 048
     Dates: start: 20130317, end: 20130330
  2. AMOXICILLIN(AMOXICILLIN)(TABLETS) [Concomitant]
  3. CLARITHROMYCIN(CLARITHROMYCIN) [Concomitant]

REACTIONS (2)
  - Vision blurred [None]
  - Weight decreased [None]
